FAERS Safety Report 8821486 (Version 2)
Quarter: 2013Q4

REPORT INFORMATION
  Report Type: Spontaneous
  Country: US (occurrence: US)
  Receive Date: 20121002
  Receipt Date: 20131125
  Transmission Date: 20140711
  Serious: Yes (Death)
  Sender: FDA-Public Use
  Company Number: US-CELGENEUS-163-21880-12100104

PATIENT
  Age: 67 Year
  Sex: Female

DRUGS (4)
  1. REVLIMID [Suspect]
     Indication: PLASMA CELL MYELOMA
     Dosage: 10 MILLIGRAM
     Route: 048
     Dates: start: 20120530, end: 20120612
  2. ZOMETA [Concomitant]
     Indication: BONE LESION
     Dosage: 3.3 MILLIGRAM
     Route: 041
     Dates: start: 20120327, end: 20120605
  3. VELCADE [Concomitant]
     Indication: PLASMA CELL MYELOMA
     Dosage: 1.8 MILLIGRAM
     Route: 041
     Dates: start: 20120306, end: 20120605
  4. DEXAMETHASONE [Concomitant]
     Indication: PLASMA CELL MYELOMA
     Dosage: 40 MILLIGRAM
     Route: 048
     Dates: start: 20120423, end: 20120611

REACTIONS (1)
  - Death [Fatal]
